FAERS Safety Report 9024647 (Version 3)
Quarter: 2014Q1

REPORT INFORMATION
  Report Type: Spontaneous
  Country: GB (occurrence: GB)
  Receive Date: 20130120
  Receipt Date: 20140122
  Transmission Date: 20141002
  Serious: Yes (Other)
  Sender: FDA-Public Use
  Company Number: PHHY2013GB004123

PATIENT
  Age: 46 Year
  Sex: Male
  Weight: 75 kg

DRUGS (11)
  1. AMLODIPINE [Suspect]
     Dosage: 5 MG
  2. INCIVO [Suspect]
     Indication: HEPATITIS C
     Dosage: 750 MG, TID
     Route: 048
     Dates: start: 20121001
  3. COPEGUS [Suspect]
     Indication: HEPATITIS C
     Dosage: 1000 MG
     Route: 048
     Dates: start: 20121001
  4. COPEGUS [Suspect]
     Dosage: 400 MG
     Route: 048
  5. COPEGUS [Suspect]
     Dosage: 200 MG
     Route: 048
  6. PEGASYS [Concomitant]
     Indication: HEPATITIS C
     Route: 058
  7. PEGASYS [Concomitant]
     Route: 058
  8. PEGASYS [Concomitant]
     Route: 058
  9. RAMIPRIL [Concomitant]
     Indication: BLOOD PRESSURE
     Dosage: 10 MG
     Route: 065
  10. NOVORAPID [Concomitant]
     Indication: DIABETES MELLITUS
     Dosage: 34 IU
     Route: 065
  11. LANTUS [Concomitant]
     Indication: PRODUCT USED FOR UNKNOWN INDICATION
     Dosage: DOSAGE FORM: UNSPECIFIED
     Route: 065

REACTIONS (5)
  - Electrocardiogram QT prolonged [Recovered/Resolved]
  - Haemoglobin decreased [Not Recovered/Not Resolved]
  - Drug interaction [Recovered/Resolved]
  - Vision blurred [Recovered/Resolved]
  - Rash [Recovering/Resolving]
